FAERS Safety Report 10515246 (Version 1)
Quarter: 2014Q4

REPORT INFORMATION
  Report Type: Report from Study
  Country: US (occurrence: US)
  Receive Date: 20141014
  Receipt Date: 20141014
  Transmission Date: 20150528
  Serious: Yes (Hospitalization)
  Sender: FDA-Public Use
  Company Number: US-JNJFOC-20141005598

PATIENT
  Age: 22 Year
  Sex: Male
  Weight: 150.8 kg

DRUGS (3)
  1. ACETAMINOPHEN. [Suspect]
     Active Substance: ACETAMINOPHEN
     Route: 048
  2. ACETAMINOPHEN. [Suspect]
     Active Substance: ACETAMINOPHEN
     Indication: PRODUCT USED FOR UNKNOWN INDICATION
     Dosage: APPROXIMATELY 50 TABLETS
     Route: 048
  3. ETHANOL [Suspect]
     Active Substance: ALCOHOL
     Indication: PRODUCT USED FOR UNKNOWN INDICATION
     Route: 048

REACTIONS (4)
  - Intentional self-injury [Unknown]
  - Nausea [Unknown]
  - Liver function test abnormal [Unknown]
  - Intentional overdose [Unknown]

NARRATIVE: CASE EVENT DATE: 20141003
